FAERS Safety Report 12884454 (Version 3)
Quarter: 2016Q4

REPORT INFORMATION
  Report Type: Other
  Country: CA (occurrence: CA)
  Receive Date: 20161026
  Receipt Date: 20161108
  Transmission Date: 20170207
  Serious: Yes (Other)
  Sender: FDA-Public Use
  Company Number: CA-SHIRE-CA201615073

PATIENT
  Age: 49 Year
  Sex: Female

DRUGS (11)
  1. VITAMIN D [Concomitant]
     Active Substance: CHOLECALCIFEROL
     Indication: PRODUCT USED FOR UNKNOWN INDICATION
     Dosage: 50000 IU, 3 TIMES WEEKLY
     Route: 065
  2. VITAMIN C [Concomitant]
     Active Substance: ASCORBIC ACID
     Indication: PRODUCT USED FOR UNKNOWN INDICATION
     Dosage: 500 MG, 3 TO 4 TIMES WEEKLY
     Route: 065
  3. RANITIDINE. [Concomitant]
     Active Substance: RANITIDINE
     Indication: PRODUCT USED FOR UNKNOWN INDICATION
     Dosage: UNK, 1X/DAY:QD IN TPN
     Route: 042
  4. REVESTIVE [Suspect]
     Active Substance: TEDUGLUTIDE
     Indication: SHORT-BOWEL SYNDROME
     Dosage: 2.7 MG, 1X/DAY:QD
     Route: 058
     Dates: start: 20160331
  5. URSODIOL. [Concomitant]
     Active Substance: URSODIOL
     Indication: PRODUCT USED FOR UNKNOWN INDICATION
     Dosage: 500 MG, 2X/DAY:BID
     Route: 048
  6. REVESTIVE [Suspect]
     Active Substance: TEDUGLUTIDE
     Dosage: UNK, UNKNOWN
     Route: 058
     Dates: start: 20160927
  7. VENLAFAXINE [Concomitant]
     Active Substance: VENLAFAXINE HYDROCHLORIDE
     Indication: PRODUCT USED FOR UNKNOWN INDICATION
     Dosage: 75 MG, 1X/DAY:QD
     Route: 048
  8. MULTIVITAMIN                       /00097801/ [Concomitant]
     Active Substance: VITAMINS
     Indication: PRODUCT USED FOR UNKNOWN INDICATION
     Dosage: UNK, 1X/DAY:QD, IN TPN
     Route: 042
  9. TPN [Concomitant]
     Active Substance: AMINO ACIDS\DEXTROSE\ELECTROLYTES NOS\SOYBEAN OIL
     Indication: PRODUCT USED FOR UNKNOWN INDICATION
     Dosage: 1800 ML, 6 DAYS WEEKLY OVER 12 HOURS
     Route: 042
  10. SALOFALK [Concomitant]
     Active Substance: MESALAMINE
     Indication: PRODUCT USED FOR UNKNOWN INDICATION
     Dosage: 500 MG, BID TO TID
     Route: 048
  11. VITAMIN K [Concomitant]
     Active Substance: PHYTONADIONE
     Indication: PRODUCT USED FOR UNKNOWN INDICATION
     Dosage: UNK, 1X/WEEK, IN TPN
     Route: 042

REACTIONS (9)
  - Muscle spasms [Unknown]
  - Obstruction [Recovered/Resolved]
  - Asthenia [Unknown]
  - Lethargy [Unknown]
  - Abdominal pain upper [Unknown]
  - Abdominal distension [Recovered/Resolved]
  - Nausea [Unknown]
  - Musculoskeletal pain [Unknown]
  - Decreased appetite [Unknown]

NARRATIVE: CASE EVENT DATE: 2016
